FAERS Safety Report 10277099 (Version 2)
Quarter: 2014Q3

REPORT INFORMATION
  Report Type: Spontaneous
  Country: AT (occurrence: AT)
  Receive Date: 20140703
  Receipt Date: 20140812
  Transmission Date: 20150326
  Serious: Yes (Other)
  Sender: FDA-Public Use
  Company Number: AT-GLAXOSMITHKLINE-B1010186A

PATIENT
  Sex: Female
  Weight: 88 kg

DRUGS (1)
  1. WELLBUTRIN [Suspect]
     Active Substance: BUPROPION HYDROCHLORIDE
     Indication: PRODUCT USED FOR UNKNOWN INDICATION
     Route: 065
     Dates: start: 20130527, end: 201310

REACTIONS (4)
  - Loss of consciousness [Unknown]
  - Epilepsy [Recovered/Resolved]
  - Circulatory collapse [Unknown]
  - Weight decreased [Unknown]

NARRATIVE: CASE EVENT DATE: 20140212
